FAERS Safety Report 8178672-8 (Version None)
Quarter: 2012Q1

REPORT INFORMATION
  Report Type: 
  Country: None (occurrence: None)
  Receive Date: 20120301
  Receipt Date: 20120228
  Transmission Date: 20120608
  Serious: No
  Sender: FDA-Public Use
  Company Number: US-PFIZER INC-2012053740

PATIENT
  Sex: Female

DRUGS (2)
  1. LYRICA [Suspect]
     Indication: FIBROMYALGIA
     Dosage: 50 MG, DAILY
     Route: 048
     Dates: start: 20111201
  2. LYRICA [Suspect]
     Dosage: 100 MG, DAILY
     Route: 048
     Dates: end: 20120101

REACTIONS (1)
  - DIARRHOEA [None]
